FAERS Safety Report 16282703 (Version 1)
Quarter: 2019Q2

REPORT INFORMATION
  Report Type: Spontaneous
  Country: US (occurrence: US)
  Receive Date: 20190507
  Receipt Date: 20190507
  Transmission Date: 20190711
  Serious: Yes (Other)
  Sender: FDA-Public Use
  Company Number: US-AMREGENT-20190879

PATIENT
  Age: 73 Year
  Sex: Male

DRUGS (4)
  1. DILTIAZEM. [Suspect]
     Active Substance: DILTIAZEM
     Dosage: UNKNOWN
     Route: 065
  2. DIGOXIN. [Suspect]
     Active Substance: DIGOXIN
     Dosage: UNKNOWN
     Route: 065
  3. ADENOSINE INJECTION, USP (6404-10) [Suspect]
     Active Substance: ADENOSINE
     Dosage: UNKNOWN
     Route: 065
  4. AMIODARONE [Suspect]
     Active Substance: AMIODARONE
     Dosage: UNKNOWN
     Route: 065

REACTIONS (2)
  - Drug ineffective for unapproved indication [Unknown]
  - Product use in unapproved indication [Recovered/Resolved]
